FAERS Safety Report 13918578 (Version 1)
Quarter: 2017Q3

REPORT INFORMATION
  Report Type: Spontaneous
  Country: FR (occurrence: FR)
  Receive Date: 20170829
  Receipt Date: 20170829
  Transmission Date: 20171127
  Serious: Yes (Other)
  Sender: FDA-Public Use
  Company Number: FR-MERCK KGAA-2025275

PATIENT
  Sex: Female

DRUGS (1)
  1. NOVOTHYROX [Suspect]
     Active Substance: LEVOTHYROXINE SODIUM
     Indication: HYPOTHYROIDISM

REACTIONS (6)
  - Gastrointestinal disorder [Unknown]
  - Myalgia [Unknown]
  - Blood cholesterol increased [Unknown]
  - Hyperthyroidism [Not Recovered/Not Resolved]
  - Fatigue [Unknown]
  - Blood triglycerides increased [Unknown]
